FAERS Safety Report 4340791-1 (Version None)
Quarter: 2004Q2

REPORT INFORMATION
  Report Type: 
  Country: None (occurrence: None)
  Receive Date: 20040419
  Receipt Date: 20030825
  Transmission Date: 20050107
  Serious: No
  Sender: FDA-Public Use
  Company Number: US-GLAXOSMITHKLINE-A0423420A

PATIENT
  Age: 86 Year
  Sex: Female

DRUGS (5)
  1. ESKALITH [Suspect]
     Route: 048
  2. LASIX [Concomitant]
  3. LIPITOR [Concomitant]
  4. COZAAR [Concomitant]
  5. ASPIRIN [Concomitant]

REACTIONS (1)
  - RASH [None]
